FAERS Safety Report 6291826-0 (Version None)
Quarter: 2009Q3

REPORT INFORMATION
  Report Type: 
  Country: None (occurrence: None)
  Receive Date: 20090730
  Receipt Date: 20090722
  Transmission Date: 20100115
  Serious: Yes (Other)
  Sender: FDA-Public Use
  Company Number: US-ASTRAZENECA-2009SE05881

PATIENT
  Age: 57 Year
  Sex: Female
  Weight: 127 kg

DRUGS (19)
  1. NEXIUM [Suspect]
     Route: 048
  2. CYMBALTA [Concomitant]
  3. XANAX (GEN) [Concomitant]
  4. PREDNISONE TAB [Concomitant]
  5. METHOTREXATE [Concomitant]
  6. REMICADE [Concomitant]
  7. ADVAIR HFA [Concomitant]
  8. DIOVAN [Concomitant]
  9. DIGOXIN [Concomitant]
  10. TRICOR [Concomitant]
  11. TOPROL-XL [Concomitant]
  12. COUMADIN [Concomitant]
  13. COMBIVENT [Concomitant]
  14. METFORMIN [Concomitant]
  15. FUROSEMIDE [Concomitant]
  16. ULTRAM [Concomitant]
  17. ZYRTEC [Concomitant]
  18. FOLIC ACID [Concomitant]
  19. POTASSIUM CHLORIDE [Concomitant]

REACTIONS (1)
  - POLYPECTOMY [None]
